FAERS Safety Report 6638698-X (Version None)
Quarter: 2010Q1

REPORT INFORMATION
  Report Type: 
  Country: None (occurrence: None)
  Receive Date: 20100316
  Receipt Date: 20100316
  Transmission Date: 20100710
  Serious: Yes (Other)
  Sender: FDA-Public Use
  Company Number: None

PATIENT
  Age: 29 Year
  Sex: Female
  Weight: 70.3075 kg

DRUGS (2)
  1. LUPRON [Suspect]
     Indication: ENDOMETRIOSIS
     Dates: start: 20041007, end: 20041007
  2. LUPRON [Suspect]
     Indication: ENDOMETRIOSIS
     Dates: start: 20050207, end: 20050207

REACTIONS (8)
  - ABASIA [None]
  - ARTHRITIS [None]
  - CRYING [None]
  - HEADACHE [None]
  - INTERVERTEBRAL DISC PROTRUSION [None]
  - MARITAL PROBLEM [None]
  - NERVE COMPRESSION [None]
  - PAIN IN EXTREMITY [None]
